FAERS Safety Report 8438886 (Version 3)
Quarter: 2013Q4

REPORT INFORMATION
  Report Type: Spontaneous
  Country: GB (occurrence: GB)
  Receive Date: 20120302
  Receipt Date: 20131031
  Transmission Date: 20140711
  Serious: Yes (Other)
  Sender: FDA-Public Use
  Company Number: GB-MERCK-1202USA04086

PATIENT
  Sex: Male

DRUGS (5)
  1. DEXAMETHASONE TABLETS BP 2.0MG [Suspect]
     Dosage: 6 MG/M2, QD
     Route: 048
  2. ASPARAGINASE (AS DRUG) [Suspect]
     Dosage: 1000 UNITS/M2 ON DAYS 4 AND 18
     Route: 030
  3. ASPARAGINASE (AS DRUG) [Suspect]
     Dosage: 20000 UNITS/M2
     Route: 030
  4. VINCRISTINE SULFATE [Concomitant]
     Dosage: 1.50 MG/M2, QW
     Route: 042
  5. DAUNORUBICIN [Concomitant]
     Dosage: 25 MG/M2, UNK
     Route: 042

REACTIONS (3)
  - Hypertriglyceridaemia [Unknown]
  - Oedema peripheral [Unknown]
  - Hyponatraemia [Unknown]
